FAERS Safety Report 9804440 (Version 1)
Quarter: 2014Q1

REPORT INFORMATION
  Report Type: Spontaneous
  Country: US (occurrence: US)
  Receive Date: 20140108
  Receipt Date: 20140108
  Transmission Date: 20141002
  Serious: Yes (Death)
  Sender: FDA-Public Use
  Company Number: US-UCBSA-108469

PATIENT
  Age: 49 Year
  Sex: Male

DRUGS (5)
  1. ACETAMINOPHEN /HYDROCODONE [Suspect]
     Dosage: ROUTE: INGESTION/UNKNOWN
  2. MORPHINE [Suspect]
     Dosage: ROUTE: INGESTION/UNKNOWN
  3. OXYCODONE [Suspect]
     Dosage: ROUTE: INGESTION/UNKNOWN
  4. COCAINE [Suspect]
     Dosage: ROUTE: INGESTION/UNKNOWN
  5. PSEUDOEPHEDRINE [Suspect]
     Dosage: ROUTE: INGESTION/UNKNOWN

REACTIONS (1)
  - Intentional drug misuse [Fatal]
